FAERS Safety Report 7636425-0 (Version None)
Quarter: 2011Q3

REPORT INFORMATION
  Report Type: 
  Country: None (occurrence: None)
  Receive Date: 20110719
  Receipt Date: 20110704
  Transmission Date: 20111222
  Serious: Yes (Other)
  Sender: FDA-Public Use
  Company Number: 2011MA008510

PATIENT
  Sex: Female

DRUGS (2)
  1. FEVERALL [Suspect]
  2. ARICEPT [Suspect]
     Dates: end: 20110621

REACTIONS (4)
  - TOXICITY TO VARIOUS AGENTS [None]
  - BLOOD LACTATE DEHYDROGENASE INCREASED [None]
  - ALANINE AMINOTRANSFERASE INCREASED [None]
  - ABNORMAL CLOTTING FACTOR [None]
